FAERS Safety Report 5147541-X (Version None)
Quarter: 2006Q4

REPORT INFORMATION
  Report Type: 
  Country: None (occurrence: None)
  Receive Date: 20061109
  Receipt Date: 20061101
  Transmission Date: 20070319
  Serious: Yes (Hospitalization, Other)
  Sender: FDA-Public Use
  Company Number: JP-ABBOTT-06P-087-0348825-00

PATIENT
  Age: 72 Year
  Sex: Female
  Weight: 43 kg

DRUGS (9)
  1. CLARITHROMYCIN [Suspect]
     Indication: UPPER RESPIRATORY TRACT INFLAMMATION
     Route: 048
     Dates: start: 20061002, end: 20061003
  2. CLARITHROMYCIN [Suspect]
     Indication: NASOPHARYNGITIS
  3. AZITHROMYCIN DIHYDRATE [Suspect]
     Indication: UPPER RESPIRATORY TRACT INFLAMMATION
     Route: 048
     Dates: start: 20060926, end: 20060928
  4. PRAVASTATIN SODIUM [Suspect]
     Indication: HYPERLIPIDAEMIA
     Route: 048
     Dates: start: 20060202
  5. VALSARTAN [Concomitant]
     Indication: HYPERTENSION
     Route: 048
     Dates: start: 20060202, end: 20060928
  6. SUCRALFATE HYDRATE [Concomitant]
     Indication: GASTRITIS
     Route: 048
     Dates: start: 20060202
  7. LORAZEPAM [Concomitant]
     Indication: INSOMNIA
     Route: 048
     Dates: start: 20060410
  8. PROPIVERINE HYDROCHLORIDE [Concomitant]
     Indication: NEUROGENIC BLADDER
     Route: 048
     Dates: start: 20060704
  9. LOSARTAN POTASSIUM [Concomitant]
     Indication: HYPERTENSION
     Route: 048
     Dates: start: 20060929

REACTIONS (7)
  - DEHYDRATION [None]
  - DIARRHOEA [None]
  - GASTROENTERITIS [None]
  - NAUSEA [None]
  - ORAL INTAKE REDUCED [None]
  - SUPERINFECTION [None]
  - VOMITING [None]
